FAERS Safety Report 10077133 (Version 2)
Quarter: 2014Q2

REPORT INFORMATION
  Report Type: Spontaneous
  Country: SE (occurrence: SE)
  Receive Date: 20140414
  Receipt Date: 20140424
  Transmission Date: 20141212
  Serious: Yes (Life-Threatening, Disabling, Other)
  Sender: FDA-Public Use
  Company Number: SE-NAPPMUNDI-GBR-2014-0017820

PATIENT
  Sex: Female

DRUGS (1)
  1. PALLADON COMP SOLUTION FOR INJECTION [Suspect]
     Indication: PAIN
     Dosage: 10 MG/ML, UNK
     Route: 042

REACTIONS (5)
  - Wrong drug administered [Unknown]
  - Loss of consciousness [Unknown]
  - Respiratory arrest [Unknown]
  - Pain in extremity [Unknown]
  - Feeling abnormal [Unknown]
